FAERS Safety Report 6652186-6 (Version None)
Quarter: 2010Q1

REPORT INFORMATION
  Report Type: 
  Country: None (occurrence: None)
  Receive Date: 20100309
  Receipt Date: 20091119
  Transmission Date: 20100710
  Serious: No
  Sender: FDA-Public Use
  Company Number: 2009SP037475

PATIENT
  Age: 42 Year
  Sex: Female

DRUGS (4)
  1. SAPHRIS [Suspect]
     Indication: SCHIZOAFFECTIVE DISORDER
     Dosage: 5 MG; QD
  2. SEROQUEL [Concomitant]
  3. DEPAKOTE [Concomitant]
  4. LEXAPRO [Concomitant]

REACTIONS (1)
  - OEDEMA PERIPHERAL [None]
